FAERS Safety Report 11143266 (Version 2)
Quarter: 2015Q3

REPORT INFORMATION
  Report Type: Spontaneous
  Country: US (occurrence: US)
  Receive Date: 20150526
  Receipt Date: 20150826
  Transmission Date: 20151125
  Serious: No
  Sender: FDA-Public Use
  Company Number: US-NOVEN PHARMACEUTICALS, INC.-US2015000197

PATIENT
  Age: 52 Year
  Sex: Female

DRUGS (8)
  1. MINIVELLE [Suspect]
     Active Substance: ESTRADIOL
     Dosage: 0.05 MG, UNKNOWN
     Route: 062
     Dates: start: 201504
  2. CLONAZEPAM. [Concomitant]
     Active Substance: CLONAZEPAM
  3. PROZAC [Concomitant]
     Active Substance: FLUOXETINE HYDROCHLORIDE
     Indication: DEPRESSION
     Dosage: LOWER THAN 10MG
  4. MINIVELLE [Suspect]
     Active Substance: ESTRADIOL
     Indication: NIGHT SWEATS
     Dosage: 0.075 MG, UNK
     Route: 062
     Dates: start: 201309, end: 201409
  5. MINIVELLE [Suspect]
     Active Substance: ESTRADIOL
     Dosage: 0.075 UNK, UNK
     Route: 062
     Dates: start: 20150127, end: 201504
  6. MINIVELLE [Suspect]
     Active Substance: ESTRADIOL
     Indication: HOT FLUSH
     Dosage: 0.05 MG, UNK
     Route: 062
     Dates: start: 2013, end: 201309
  7. PROGESTERONE. [Concomitant]
     Active Substance: PROGESTERONE
  8. MINIVELLE [Suspect]
     Active Substance: ESTRADIOL
     Dosage: CUTTING THE PATCHES OF 0.075MG IN HALF
     Route: 062
     Dates: start: 201409

REACTIONS (13)
  - Migraine [Not Recovered/Not Resolved]
  - Mood swings [Not Recovered/Not Resolved]
  - Wrong technique in product usage process [Unknown]
  - Depression [Not Recovered/Not Resolved]
  - Headache [Unknown]
  - Incorrect product storage [Unknown]
  - Blood oestrogen decreased [Unknown]
  - Anxiety [Not Recovered/Not Resolved]
  - Arthralgia [Not Recovered/Not Resolved]
  - Off label use [Unknown]
  - Crying [Not Recovered/Not Resolved]
  - Vaginal haemorrhage [Recovered/Resolved]
  - Chills [Not Recovered/Not Resolved]

NARRATIVE: CASE EVENT DATE: 2013
